FAERS Safety Report 9349557 (Version 1)
Quarter: 2013Q2

REPORT INFORMATION
  Report Type: Spontaneous
  Country: FR (occurrence: FR)
  Receive Date: 20130614
  Receipt Date: 20130614
  Transmission Date: 20140414
  Serious: Yes (Life-Threatening, Hospitalization)
  Sender: FDA-Public Use
  Company Number: FR-GLAXOSMITHKLINE-B0897855A

PATIENT
  Age: 77 Year
  Sex: Male

DRUGS (5)
  1. ARIXTRA [Suspect]
     Indication: PULMONARY EMBOLISM
     Route: 058
     Dates: start: 201302, end: 201302
  2. PREVISCAN [Suspect]
     Indication: PULMONARY EMBOLISM
     Dosage: 15MG PER DAY
     Route: 048
     Dates: start: 20130222, end: 201303
  3. ROCEPHINE [Concomitant]
     Indication: LUNG DISORDER
     Route: 065
  4. OCTAPLEX [Concomitant]
     Route: 065
     Dates: start: 20130305
  5. VITAMIN K [Concomitant]
     Dosage: 10MG PER DAY
     Route: 065
     Dates: start: 20130305

REACTIONS (9)
  - Subdural haematoma [Recovered/Resolved]
  - Aphasia [Unknown]
  - Hemiparesis [Unknown]
  - Extradural haematoma [Unknown]
  - Brain herniation [Unknown]
  - Neurological decompensation [Unknown]
  - Pupils unequal [Unknown]
  - Mydriasis [Unknown]
  - Drug interaction [Unknown]
